FAERS Safety Report 23248491 (Version 1)
Quarter: 2023Q4

REPORT INFORMATION
  Report Type: Spontaneous
  Country: US (occurrence: US)
  Receive Date: 20231201
  Receipt Date: 20231201
  Transmission Date: 20240109
  Serious: No
  Sender: FDA-Public Use
  Company Number: US-009507513-2311USA008064

PATIENT
  Age: 51 Year
  Sex: Female

DRUGS (3)
  1. TEMODAR [Suspect]
     Active Substance: TEMOZOLOMIDE
     Indication: Malignant pituitary tumour
     Dosage: UNK
     Route: 048
     Dates: start: 2018, end: 2020
  2. TEMODAR [Suspect]
     Active Substance: TEMOZOLOMIDE
     Indication: Intracranial mass
  3. TEMODAR [Suspect]
     Active Substance: TEMOZOLOMIDE
     Indication: Metastases to meninges

REACTIONS (1)
  - Product use in unapproved indication [Unknown]
